FAERS Safety Report 24069489 (Version 1)
Quarter: 2024Q3

REPORT INFORMATION
  Report Type: Report from Study
  Country: US (occurrence: US)
  Receive Date: 20240710
  Receipt Date: 20240710
  Transmission Date: 20241017
  Serious: No
  Sender: ROCHE
  Company Number: US-ROCHE-3577095

PATIENT
  Age: 69 Year
  Sex: Female

DRUGS (2)
  1. PHESGO [Suspect]
     Active Substance: HYALURONIDASE-ZZXF\PERTUZUMAB\TRASTUZUMAB
     Indication: Breast cancer female
     Dosage: INJECT 1,200MG-600MG-30,000U (15ML) UNDER THE SKIN SUBCUTANEOUSLY DAY 1 OF CYCLE 1 (LOADING DOSE)? F
     Route: 058
  2. PHESGO [Suspect]
     Active Substance: HYALURONIDASE-ZZXF\PERTUZUMAB\TRASTUZUMAB
     Indication: Breast cancer female

REACTIONS (2)
  - Product prescribing error [Unknown]
  - No adverse event [Unknown]
